FAERS Safety Report 7587144-0 (Version None)
Quarter: 2011Q3

REPORT INFORMATION
  Report Type: 
  Country: None (occurrence: None)
  Receive Date: 20110701
  Receipt Date: 20110623
  Transmission Date: 20111222
  Serious: Yes (Other)
  Sender: FDA-Public Use
  Company Number: US-GENENTECH-320667

PATIENT
  Sex: Male

DRUGS (1)
  1. TNKASE [Suspect]
     Indication: ACUTE MYOCARDIAL INFARCTION
     Dosage: 35 MG, UNK
     Route: 042
     Dates: start: 20110623

REACTIONS (1)
  - DRUG INEFFECTIVE [None]
